FAERS Safety Report 19405227 (Version 4)
Quarter: 2021Q3

REPORT INFORMATION
  Report Type: Report from Study
  Country: US (occurrence: US)
  Receive Date: 20210611
  Receipt Date: 20210729
  Transmission Date: 20211014
  Serious: Yes (Other)
  Sender: FDA-Public Use
  Company Number: NVSC2021US125768

PATIENT
  Age: 8 Year
  Sex: Male

DRUGS (3)
  1. ILARIS [Suspect]
     Active Substance: CANAKINUMAB
     Dosage: 150 MG, QMO
     Route: 058
  2. ILARIS [Suspect]
     Active Substance: CANAKINUMAB
     Indication: JUVENILE IDIOPATHIC ARTHRITIS
     Dosage: 122 MG, QMO
     Route: 058
     Dates: start: 20200618
  3. ILARIS [Suspect]
     Active Substance: CANAKINUMAB
     Dosage: 122 MG, QMO
     Route: 058
     Dates: start: 20210610

REACTIONS (4)
  - Rash [Unknown]
  - Juvenile idiopathic arthritis [Unknown]
  - Incorrect dose administered [Unknown]
  - Pyrexia [Unknown]

NARRATIVE: CASE EVENT DATE: 202105
